FAERS Safety Report 13790847 (Version 1)
Quarter: 2017Q3

REPORT INFORMATION
  Report Type: Report from Study
  Country: US (occurrence: US)
  Receive Date: 20170725
  Receipt Date: 20170725
  Transmission Date: 20171127
  Serious: Yes (Other)
  Sender: FDA-Public Use
  Company Number: US-KAMADA LIMITED-2017US006786

PATIENT

DRUGS (50)
  1. HYDROCODONE/ACETAMINOPHEN [Concomitant]
     Active Substance: ACETAMINOPHEN\HYDROCODONE
     Dosage: UNK, PRN; 90 DAYS
  2. LIDODERM [Concomitant]
     Active Substance: LIDOCAINE
     Dosage: 1 UNK, DAILY, 90 DAYS
  3. ADVAIR HFA [Concomitant]
     Active Substance: FLUTICASONE PROPIONATE\SALMETEROL XINAFOATE
     Dosage: TUD 90 DAYS, 3
  4. BD                                 /00567502/ [Concomitant]
     Dosage: TUD 90 DAYS, 3
  5. WELLBUTRIN [Concomitant]
     Active Substance: BUPROPION HYDROCHLORIDE
     Dosage: 1 UNK, BID, 90 DAYS
  6. VOLTAREN [Concomitant]
     Active Substance: DICLOFENAC SODIUM
     Dosage: 90 DAYS, 3
  7. ROPINIROLE HCL [Concomitant]
     Active Substance: ROPINIROLE HYDROCHLORIDE
     Dosage: 90 DAYS, 3
  8. FLOVENT [Concomitant]
     Active Substance: FLUTICASONE PROPIONATE
     Dosage: 1 UNK, BID
  9. TYLENOL EXTRA STRENGTH [Concomitant]
     Active Substance: ACETAMINOPHEN
     Dosage: UNK, PRN
  10. GLASSIA [Suspect]
     Active Substance: .ALPHA.1-PROTEINASE INHIBITOR HUMAN
     Dosage: 60 MG/KG, 1/WEEK
     Route: 042
     Dates: start: 20170509
  11. CALCIUM 600+D                      /00944201/ [Concomitant]
     Dosage: 1 UNK, BID, 90 DAYS
  12. HYDROXYCHLOROQUINE SULFATE. [Concomitant]
     Active Substance: HYDROXYCHLOROQUINE SULFATE
     Dosage: 1 UNK, BID, 90 DAYS
  13. GABAPENTIN. [Concomitant]
     Active Substance: GABAPENTIN
     Dosage: 1 UNK, TID, 90 DAYS
  14. CYMBALTA [Concomitant]
     Active Substance: DULOXETINE HYDROCHLORIDE
     Dosage: 90 DAYS, 3
  15. JANUVIA [Concomitant]
     Active Substance: SITAGLIPTIN PHOSPHATE
     Dosage: 1 UNK, DAILY, 30 DAYS
  16. METHYLPHENIDATE HYDROCHLORIDE. [Concomitant]
     Active Substance: METHYLPHENIDATE HYDROCHLORIDE
     Dosage: 1 UNK, TID
  17. PROAIR HFA [Concomitant]
     Active Substance: ALBUTEROL SULFATE
     Dosage: 90 DAYS, 3
  18. LASIX [Concomitant]
     Active Substance: FUROSEMIDE
     Dosage: 1 UNK, BID, 90 DAYS
  19. RECLAST [Concomitant]
     Active Substance: ZOLEDRONIC ACID
     Dosage: UNK
  20. GLYNASE                            /00145301/ [Concomitant]
     Dosage: 1 UNK, BID
  21. GLIMEPIRIDE. [Concomitant]
     Active Substance: GLIMEPIRIDE
     Dosage: 1 UNK, DAILY, 30 DAYS
  22. ZYRTEC                             /00884302/ [Concomitant]
     Dosage: 1 UNK, DAILY
  23. GLASSIA [Suspect]
     Active Substance: .ALPHA.1-PROTEINASE INHIBITOR HUMAN
     Indication: ALPHA-1 ANTI-TRYPSIN DEFICIENCY
     Dosage: 60 MG/KG, 1/WEEK
     Route: 042
  24. PROMETHAZINE HCL [Concomitant]
     Active Substance: PROMETHAZINE HYDROCHLORIDE
     Dosage: 30 DAYS, UNK
  25. CARAFATE [Concomitant]
     Active Substance: SUCRALFATE
     Dosage: ACHS1 90
  26. NUVIGIL [Concomitant]
     Active Substance: ARMODAFINIL
     Dosage: 1 UNK, DAILY, 90 DAYS
  27. KLOR-CON M20 [Concomitant]
     Active Substance: POTASSIUM CHLORIDE
     Dosage: 3 UNK, DAILY, 90 DAYS
  28. DOXEPIN HCL [Concomitant]
     Active Substance: DOXEPIN HYDROCHLORIDE
     Dosage: 90 DAYS, 3
  29. DOCUSATE SODIUM. [Concomitant]
     Active Substance: DOCUSATE SODIUM
     Dosage: 90 DAYS, 3
  30. SIMVASTATIN. [Concomitant]
     Active Substance: SIMVASTATIN
     Dosage: 1DALLY 0 DAYS
  31. AZELASTINE HCL [Concomitant]
     Active Substance: AZELASTINE HYDROCHLORIDE
     Dosage: TUD 90 DAYS, 3
  32. ZEGERID [Concomitant]
     Active Substance: OMEPRAZOLE\SODIUM BICARBONATE
     Dosage: 90 DAYS, 3
  33. SPIRIVA [Concomitant]
     Active Substance: TIOTROPIUM BROMIDE MONOHYDRATE
     Dosage: 90 DAYS, 3
  34. ERGOCALCIFEROL. [Concomitant]
     Active Substance: ERGOCALCIFEROL
     Dosage: 82 DAYS, 3
  35. CYANOCOBALAMIN. [Concomitant]
     Active Substance: CYANOCOBALAMIN
     Dosage: 90 DAYS, 3
  36. CHLORHEXIDINE GLUCONATE. [Concomitant]
     Active Substance: CHLORHEXIDINE GLUCONATE
     Dosage: UNK, PRN, 90 DAYS, 3
  37. SINGULAIR [Concomitant]
     Active Substance: MONTELUKAST SODIUM
     Dosage: 1 UNK, DAILY, 90 DAYS
  38. POLYETHYLENE GLYCOL 3350. [Concomitant]
     Active Substance: POLYETHYLENE GLYCOL 3350
     Dosage: 89 DAYS, 3
  39. NEXIUM [Concomitant]
     Active Substance: ESOMEPRAZOLE MAGNESIUM
     Dosage: TUD 30 DAYS, 11
  40. RESTASIS [Concomitant]
     Active Substance: CYCLOSPORINE
     Dosage: TUD 0 DAYS
  41. OMEPRAZOLE. [Concomitant]
     Active Substance: OMEPRAZOLE
     Dosage: 1 UNK, BID
  42. ATROVENT [Concomitant]
     Active Substance: IPRATROPIUM BROMIDE
     Dosage: UNK, PRN; 0 DAYS
  43. TOPAMAX [Concomitant]
     Active Substance: TOPIRAMATE
     Dosage: TUD 90 DAYS, 3
  44. FEXOFENADINE HCL [Concomitant]
     Active Substance: FEXOFENADINE HYDROCHLORIDE
     Dosage: 1 UNK, DAILY, 90 DAYS
  45. BUDESONIDE. [Concomitant]
     Active Substance: BUDESONIDE
     Dosage: TUD 90 DAYS, 3
  46. PATADAY [Concomitant]
     Active Substance: OLOPATADINE HYDROCHLORIDE
     Dosage: TUD 90 DAYS, 3
  47. ZOFRAN [Concomitant]
     Active Substance: ONDANSETRON HYDROCHLORIDE
     Dosage: Q4-6H 90 DAYS
  48. LASTACAFT [Concomitant]
     Active Substance: ALCAFTADINE
     Dosage: TUD 30 DAYS. P
  49. ALBUTEROL SULFATE. [Concomitant]
     Active Substance: ALBUTEROL SULFATE
     Dosage: TUD 90 DAYS, 3
  50. SUMATRIPTAN SUCCINATE. [Concomitant]
     Active Substance: SUMATRIPTAN SUCCINATE
     Dosage: 90 DAYS. 3

REACTIONS (1)
  - Eyelid ptosis [Not Recovered/Not Resolved]

NARRATIVE: CASE EVENT DATE: 20170101
